FAERS Safety Report 8603501 (Version 5)
Quarter: 2013Q3

REPORT INFORMATION
  Report Type: Report from Study
  Country: JP (occurrence: JP)
  Receive Date: 20120607
  Receipt Date: 20130712
  Transmission Date: 20140515
  Serious: Yes (Other)
  Sender: FDA-Public Use
  Company Number: PHHY2012JP048192

PATIENT
  Age: 64 Year
  Sex: Female

DRUGS (9)
  1. FTY 720 [Suspect]
     Indication: RELAPSING-REMITTING MULTIPLE SCLEROSIS
     Dosage: 0.5 MG, UNK
     Route: 048
     Dates: start: 20120530, end: 20120829
  2. VERAPAMIL [Suspect]
     Dosage: 120 MG, DAILY
     Dates: start: 20120530
  3. PRAVASTATIN [Concomitant]
     Indication: HYPERLIPIDAEMIA
     Dosage: 10 MG, DAILY
     Route: 048
  4. RANITIDINE [Concomitant]
     Dosage: 300 MG, DAILY
     Route: 048
  5. SOLIFENACIN SUCCINATE [Concomitant]
     Dosage: 5 MG, DAILY
     Route: 048
  6. CLONAZEPAM [Concomitant]
     Dosage: 0.5 MG, DAILY
     Route: 048
  7. MENATETRENONE [Concomitant]
     Dosage: 45 MG, DAILY
     Route: 048
  8. MECOBALAMIN [Concomitant]
     Dosage: 1500 UG, DAILY
  9. MAGNESIUM OXIDE [Concomitant]
     Dosage: 990 MG, DAILY
     Route: 048

REACTIONS (7)
  - Electrocardiogram change [Recovered/Resolved]
  - Electrocardiogram low voltage [Recovered/Resolved]
  - Electrocardiogram T wave inversion [Recovered/Resolved]
  - Bradycardia [Recovered/Resolved]
  - Lymphocyte count decreased [Recovered/Resolved]
  - Macular oedema [Recovered/Resolved]
  - Hypertension [Recovered/Resolved]
